FAERS Safety Report 5090217-8 (Version None)
Quarter: 2006Q3

REPORT INFORMATION
  Report Type: 
  Country: None (occurrence: None)
  Receive Date: 20060828
  Receipt Date: 20060817
  Transmission Date: 20061208
  Serious: Yes (Disabling)
  Sender: FDA-Public Use
  Company Number: US-ROCHE-460104

PATIENT
  Sex: Male

DRUGS (2)
  1. PEGASYS [Suspect]
     Dosage: ADMINISTERED  PER WEEK.
     Route: 058
     Dates: start: 20050615, end: 20060215
  2. RIBAVIRIN [Suspect]
     Route: 048
     Dates: start: 20050615, end: 20060215

REACTIONS (2)
  - ANAEMIA [None]
  - GUILLAIN-BARRE SYNDROME [None]
